FAERS Safety Report 14342699 (Version 1)
Quarter: 2018Q1

REPORT INFORMATION
  Report Type: Spontaneous
  Country: GB (occurrence: GB)
  Receive Date: 20180102
  Receipt Date: 20180102
  Transmission Date: 20180509
  Serious: Yes (Other)
  Sender: FDA-Public Use
  Company Number: GB-PFIZER INC-2017554181

PATIENT
  Age: 39 Year
  Sex: Male

DRUGS (2)
  1. REVATIO [Suspect]
     Active Substance: SILDENAFIL CITRATE
     Dosage: 20 MG, 3X/DAY
  2. STAYVEER [Concomitant]
     Active Substance: BOSENTAN
     Dosage: 125 MG, 2X/DAY

REACTIONS (2)
  - Gout [Unknown]
  - Lower respiratory tract infection [Unknown]
